FAERS Safety Report 8425361-8 (Version None)
Quarter: 2012Q2

REPORT INFORMATION
  Report Type: 
  Country: None (occurrence: None)
  Receive Date: 20120604
  Receipt Date: 20120525
  Transmission Date: 20120825
  Serious: Yes (Other)
  Sender: FDA-Public Use
  Company Number: AUR-APL-2012-02302

PATIENT
  Age: 8 Year
  Sex: Female
  Weight: 25 kg

DRUGS (5)
  1. CEFTRIAXONE [Suspect]
     Indication: PRODUCT USED FOR UNKNOWN INDICATION
     Dosage: 2 GM (1 GM, 1 IN 12 HR), INTRAVENOUS
     Route: 042
     Dates: start: 20120509, end: 20120509
  2. CLINDAMICIN (CLINDAMICIN PHOSPHATE) [Concomitant]
  3. AMIKACIN [Concomitant]
  4. BEROTEC [Concomitant]
  5. SOLU-MEDROL [Concomitant]

REACTIONS (5)
  - FLUSHING [None]
  - IMMEDIATE POST-INJECTION REACTION [None]
  - DYSPNOEA [None]
  - HYPERHIDROSIS [None]
  - TACHYCARDIA [None]
